FAERS Safety Report 5340783-X (Version None)
Quarter: 2007Q2

REPORT INFORMATION
  Report Type: 
  Country: None (occurrence: None)
  Receive Date: 20070405
  Receipt Date: 20070129
  Transmission Date: 20071010
  Serious: No
  Sender: FDA-Public Use
  Company Number: US200701006316

PATIENT
  Sex: Female

DRUGS (5)
  1. CYMBALTA [Suspect]
     Dosage: SEE IMAGE
     Dates: start: 20070101, end: 20070122
  2. CYMBALTA [Suspect]
     Dosage: SEE IMAGE
     Dates: start: 20060901
  3. RISPERDAL [Concomitant]
  4. TOPAMAX [Concomitant]
  5. XANAX [Concomitant]

REACTIONS (1)
  - DYSKINESIA [None]
